FAERS Safety Report 21070436 (Version 3)
Quarter: 2022Q3

REPORT INFORMATION
  Report Type: Spontaneous
  Country: JP (occurrence: JP)
  Receive Date: 20220712
  Receipt Date: 20220809
  Transmission Date: 20221026
  Serious: Yes (Hospitalization)
  Sender: FDA-Public Use
  Company Number: JP-GLAXOSMITHKLINE-JP2022JPN103448

PATIENT

DRUGS (5)
  1. SERETIDE [Suspect]
     Active Substance: FLUTICASONE PROPIONATE\SALMETEROL XINAFOATE
     Indication: Asthma
     Dosage: UNK, MEDIUM DOSE
  2. SERETIDE [Suspect]
     Active Substance: FLUTICASONE PROPIONATE\SALMETEROL XINAFOATE
     Dosage: UNK, HIGH DOSE
  3. THEOPHYLLINE [Concomitant]
     Active Substance: THEOPHYLLINE
     Dosage: UNK
  4. SUPLATAST TOSILATE [Concomitant]
     Active Substance: SUPLATAST TOSILATE
     Dosage: UNK
  5. CLENBUTEROL HYDROCHLORIDE [Concomitant]
     Active Substance: CLENBUTEROL HYDROCHLORIDE
     Dosage: 30 ?G/DAY

REACTIONS (4)
  - Asthma [Recovered/Resolved]
  - Dermatitis atopic [Recovered/Resolved]
  - Condition aggravated [Recovered/Resolved]
  - Symptom recurrence [Recovered/Resolved]
